FAERS Safety Report 14677191 (Version 1)
Quarter: 2018Q1

REPORT INFORMATION
  Report Type: Spontaneous
  Country: US (occurrence: US)
  Receive Date: 20180323
  Receipt Date: 20180323
  Transmission Date: 20180509
  Serious: Yes (Other)
  Sender: FDA-Public Use
  Company Number: None

PATIENT
  Age: 49 Year
  Sex: Female
  Weight: 81 kg

DRUGS (8)
  1. ATORVASTATIN [Concomitant]
     Active Substance: ATORVASTATIN
  2. BYDUREON [Suspect]
     Active Substance: EXENATIDE
     Indication: WEIGHT CONTROL
     Dosage: ?          OTHER STRENGTH:PEN;QUANTITY:1 INJECTION(S);OTHER FREQUENCY:WEEKLY;?
     Route: 030
     Dates: start: 20180225, end: 20180311
  3. LOSARTAN. [Concomitant]
     Active Substance: LOSARTAN
  4. INSULIN PUMP [Concomitant]
     Active Substance: INSULIN NOS
  5. NOVOLOG [Concomitant]
     Active Substance: INSULIN ASPART
  6. LEVOTHYROXINE. [Concomitant]
     Active Substance: LEVOTHYROXINE
  7. PRAMAPEXOLE, 1MG TABLETS [Concomitant]
     Active Substance: PRAMIPEXOLE
  8. LEXAPRO [Concomitant]
     Active Substance: ESCITALOPRAM OXALATE

REACTIONS (3)
  - Injection site pruritus [None]
  - Injection site irritation [None]
  - Injection site nodule [None]

NARRATIVE: CASE EVENT DATE: 20180320
